FAERS Safety Report 6227502-X (Version None)
Quarter: 2009Q2

REPORT INFORMATION
  Report Type: 
  Country: None (occurrence: None)
  Receive Date: 20090612
  Receipt Date: 20090609
  Transmission Date: 20091009
  Serious: Yes (Life-Threatening, Hospitalization)
  Sender: FDA-Public Use
  Company Number: PHHY2009CH13294

PATIENT
  Sex: Male

DRUGS (4)
  1. LEPONEX [Suspect]
     Indication: SCHIZOPHRENIA, PARANOID TYPE
     Dosage: UNK
     Dates: start: 20081218
  2. LEPONEX [Suspect]
     Dosage: 300 MG/DAY
     Dates: start: 20090204, end: 20090210
  3. SALVIA [Concomitant]
  4. VALVERDE [Concomitant]
     Indication: CONSTIPATION

REACTIONS (6)
  - AGRANULOCYTOSIS [None]
  - NEUTROPHIL COUNT DECREASED [None]
  - PSYCHOTIC DISORDER [None]
  - PYREXIA [None]
  - SKIN INFECTION [None]
  - STOMATITIS [None]
